FAERS Safety Report 11023901 (Version 2)
Quarter: 2015Q2

REPORT INFORMATION
  Report Type: Spontaneous
  Country: US (occurrence: US)
  Receive Date: 20150413
  Receipt Date: 20150525
  Transmission Date: 20150821
  Serious: Yes (Other)
  Sender: FDA-Public Use
  Company Number: US-JNJFOC-20100801495

PATIENT
  Age: 39 Year
  Sex: Female

DRUGS (5)
  1. LEVAQUIN [Suspect]
     Active Substance: LEVOFLOXACIN
     Indication: SINUSITIS
     Route: 048
     Dates: start: 20080725
  2. LEVAQUIN [Suspect]
     Active Substance: LEVOFLOXACIN
     Indication: SINUSITIS
     Route: 048
     Dates: start: 20080505
  3. LEVAQUIN [Suspect]
     Active Substance: LEVOFLOXACIN
     Indication: INFECTION
     Route: 048
  4. LEVAQUIN [Suspect]
     Active Substance: LEVOFLOXACIN
     Indication: UPPER RESPIRATORY TRACT INFECTION
     Route: 048
     Dates: start: 20080505
  5. LEVAQUIN [Suspect]
     Active Substance: LEVOFLOXACIN
     Indication: UPPER RESPIRATORY TRACT INFECTION
     Route: 048
     Dates: start: 20080725

REACTIONS (9)
  - Tenosynovitis [Unknown]
  - Tendon rupture [Unknown]
  - Tendonitis [Unknown]
  - Musculoskeletal pain [Unknown]
  - Myalgia [Unknown]
  - Joint swelling [Unknown]
  - Joint stiffness [Unknown]
  - Tendon disorder [Unknown]
  - Arthralgia [Unknown]

NARRATIVE: CASE EVENT DATE: 200703
